FAERS Safety Report 21885128 (Version 2)
Quarter: 2023Q1

REPORT INFORMATION
  Report Type: Spontaneous
  Country: IT (occurrence: IT)
  Receive Date: 20230119
  Receipt Date: 20230210
  Transmission Date: 20230418
  Serious: Yes (Other)
  Sender: FDA-Public Use
  Company Number: IT-TEVA-2023-IT-2846817

PATIENT
  Age: 6 Decade
  Sex: Female

DRUGS (3)
  1. GEFITINIB [Suspect]
     Active Substance: GEFITINIB
     Indication: Non-small cell lung cancer
     Dosage: 250 MILLIGRAM DAILY;
     Route: 065
     Dates: start: 201212
  2. CARBOPLATIN [Suspect]
     Active Substance: CARBOPLATIN
     Indication: Non-small cell lung cancer
     Dosage: 4 CYCLES (AREA UNDER THE PLASMA CONCENTRATION-TIME CURVE 5 MG/ML PER MIN) ON DAY 1 EVERY 3 WEEKS
     Route: 042
  3. PEMETREXED [Suspect]
     Active Substance: PEMETREXED
     Indication: Non-small cell lung cancer
     Dosage: 23.8095 MG/M2 DAILY; ON DAY 1 EVERY 3WEEKS
     Route: 042

REACTIONS (1)
  - Drug resistance [Unknown]
